FAERS Safety Report 18140456 (Version 1)
Quarter: 2020Q3

REPORT INFORMATION
  Report Type: Spontaneous
  Country: US (occurrence: US)
  Receive Date: 20200812
  Receipt Date: 20200812
  Transmission Date: 20201103
  Serious: No
  Sender: FDA-Public Use
  Company Number: US-SHIRE-US202026036

PATIENT
  Sex: Female
  Weight: 84 kg

DRUGS (2)
  1. LIALDA [Suspect]
     Active Substance: MESALAMINE
     Indication: COLITIS
  2. MESALAMINE. [Concomitant]
     Active Substance: MESALAMINE
     Indication: COLITIS

REACTIONS (6)
  - Inability to afford medication [Unknown]
  - Nausea [Unknown]
  - Abdominal pain upper [Unknown]
  - Product use complaint [Unknown]
  - Condition aggravated [Unknown]
  - Feeling abnormal [Unknown]
